FAERS Safety Report 24696887 (Version 1)
Quarter: 2024Q4

REPORT INFORMATION
  Report Type: Spontaneous
  Country: IT (occurrence: IT)
  Receive Date: 20241204
  Receipt Date: 20241204
  Transmission Date: 20250114
  Serious: Yes (Other)
  Sender: SAMSUNG BIOEPIS
  Company Number: None

PATIENT
  Age: 69 Year
  Sex: Female

DRUGS (1)
  1. ETANERCEPT [Suspect]
     Active Substance: ETANERCEPT
     Indication: Psoriatic arthropathy
     Dosage: 1 VIAL PER WEEK;
     Dates: start: 20230213, end: 202406

REACTIONS (2)
  - Pulmonary mass [Not Recovered/Not Resolved]
  - Lung adenocarcinoma [Not Recovered/Not Resolved]
